FAERS Safety Report 14630417 (Version 2)
Quarter: 2018Q2

REPORT INFORMATION
  Report Type: Other
  Country: DE (occurrence: DE)
  Receive Date: 20180313
  Receipt Date: 20180422
  Transmission Date: 20180711
  Serious: Yes (Death, Hospitalization, Other)
  Sender: FDA-Public Use
  Company Number: DE-APOTEX-2018AP008331

PATIENT

DRUGS (32)
  1. PAROXETINE. [Suspect]
     Active Substance: PAROXETINE
     Indication: AGGRESSION
     Dosage: 10 MG, QD
     Route: 065
     Dates: start: 2017
  2. DEXTROMETHORPHAN HYDROBROMIDE. [Suspect]
     Active Substance: DEXTROMETHORPHAN HYDROBROMIDE
     Indication: DELIRIUM
     Dosage: 24 MG, QD
     Route: 065
     Dates: start: 2017
  3. DRONABINOL. [Suspect]
     Active Substance: DRONABINOL
     Indication: DELIRIUM
     Dosage: UNK UNK, QD
     Route: 065
     Dates: start: 2016
  4. PAROXETINE. [Suspect]
     Active Substance: PAROXETINE
     Indication: DELIRIUM
     Dosage: 10 MG, QD
     Route: 065
     Dates: start: 2017
  5. DEXTROMETHORPHAN HYDROBROMIDE. [Suspect]
     Active Substance: DEXTROMETHORPHAN HYDROBROMIDE
     Indication: AGITATION
     Dosage: 24 MG, QD
     Route: 065
     Dates: start: 2017
  6. QUETIAPINE FUMARATE. [Suspect]
     Active Substance: QUETIAPINE FUMARATE
     Dosage: 150 MG, QD
     Route: 048
     Dates: start: 2016
  7. LORAZEPAM. [Suspect]
     Active Substance: LORAZEPAM
     Dosage: UNK
     Route: 065
  8. FORMOTEROL [Suspect]
     Active Substance: FORMOTEROL
     Indication: PNEUMONIA
     Dosage: 20 MG, QD
     Route: 065
     Dates: start: 201601
  9. PAROXETINE. [Suspect]
     Active Substance: PAROXETINE
     Indication: AGITATION
     Dosage: UNK
     Route: 065
  10. QUETIAPINE FUMARATE. [Suspect]
     Active Substance: QUETIAPINE FUMARATE
     Dosage: UNK
     Route: 048
  11. QUETIAPINE FUMARATE. [Suspect]
     Active Substance: QUETIAPINE FUMARATE
     Dosage: 100 MG, QD
     Route: 048
     Dates: start: 2017
  12. LORAZEPAM. [Suspect]
     Active Substance: LORAZEPAM
     Indication: DEMENTIA WITH LEWY BODIES
     Dosage: UNK UNK, QD
     Route: 065
     Dates: start: 2016
  13. DRONABINOL. [Suspect]
     Active Substance: DRONABINOL
     Dosage: 2.5 MG, QD
     Route: 065
     Dates: start: 2016
  14. DRONABINOL. [Suspect]
     Active Substance: DRONABINOL
     Dosage: UNK UNK, QD
     Route: 065
     Dates: start: 2016
  15. QUETIAPINE FUMARATE. [Suspect]
     Active Substance: QUETIAPINE FUMARATE
     Dosage: UNK
     Route: 048
  16. FLUPENTIXOL DIHYDROCHLORIDE [Suspect]
     Active Substance: FLUPENTIXOL DIHYDROCHLORIDE
     Dosage: AS HIGH AS TOLERATED; UNK
     Route: 048
  17. DRONABINOL. [Suspect]
     Active Substance: DRONABINOL
     Dosage: 2.5 MG, QD
     Route: 065
     Dates: start: 2016
  18. AMPICILLIN AND SULBACTAM [Suspect]
     Active Substance: AMPICILLIN SODIUM\SULBACTAM SODIUM
     Indication: PNEUMONIA
     Dosage: UNK
     Route: 065
  19. QUETIAPINE FUMARATE. [Suspect]
     Active Substance: QUETIAPINE FUMARATE
     Dosage: 100 MG, QD
     Route: 048
     Dates: start: 2017
  20. CARBAMAZEPINE. [Concomitant]
     Active Substance: CARBAMAZEPINE
     Indication: PRODUCT USED FOR UNKNOWN INDICATION
     Dosage: UNK
     Route: 065
  21. RIVASTIGMINE. [Concomitant]
     Active Substance: RIVASTIGMINE
     Indication: DELIRIUM
  22. DEXTROMETHORPHAN HYDROBROMIDE. [Suspect]
     Active Substance: DEXTROMETHORPHAN HYDROBROMIDE
     Indication: AGGRESSION
     Dosage: DOSE INCREASED, TWO DIVIDED DOSES;
     Route: 065
  23. QUETIAPINE FUMARATE. [Suspect]
     Active Substance: QUETIAPINE FUMARATE
     Indication: DEMENTIA WITH LEWY BODIES
     Dosage: 150 MG, QD
     Route: 048
     Dates: start: 2016
  24. FLUPENTIXOL DIHYDROCHLORIDE [Suspect]
     Active Substance: FLUPENTIXOL DIHYDROCHLORIDE
     Dosage: 20 MG, QD
     Route: 048
  25. DONEPEZIL. [Concomitant]
     Active Substance: DONEPEZIL
     Indication: DELIRIUM
     Dosage: UNK
     Route: 065
  26. FLUPENTIXOL DIHYDROCHLORIDE [Suspect]
     Active Substance: FLUPENTIXOL DIHYDROCHLORIDE
     Indication: PNEUMONIA
     Dosage: DAILY DOSE UNKNOWN; UNK
     Route: 048
  27. DRONABINOL. [Suspect]
     Active Substance: DRONABINOL
     Indication: AGGRESSION
     Dosage: 15 MG, QD
     Route: 065
     Dates: start: 2016
  28. DRONABINOL. [Suspect]
     Active Substance: DRONABINOL
     Dosage: 15 MG, QD
     Route: 065
     Dates: start: 2016
  29. SPIRIVA [Suspect]
     Active Substance: TIOTROPIUM BROMIDE MONOHYDRATE
     Indication: PNEUMONIA
     Dosage: UNK
     Route: 065
  30. DONEPEZIL. [Concomitant]
     Active Substance: DONEPEZIL
     Indication: DEMENTIA WITH LEWY BODIES
  31. RIVASTIGMINE. [Concomitant]
     Active Substance: RIVASTIGMINE
     Indication: AGGRESSION
     Dosage: UNK
     Route: 065
  32. RIVASTIGMINE. [Concomitant]
     Active Substance: RIVASTIGMINE
     Indication: DEMENTIA WITH LEWY BODIES

REACTIONS (9)
  - Off label use [Fatal]
  - Hangover [Fatal]
  - Completed suicide [Fatal]
  - Fatigue [Fatal]
  - Aggression [Fatal]
  - Sleep disorder [Fatal]
  - Condition aggravated [Fatal]
  - Paranoia [Fatal]
  - Product use in unapproved indication [Fatal]

NARRATIVE: CASE EVENT DATE: 2017
